FAERS Safety Report 9145216 (Version 1)
Quarter: 2013Q1

REPORT INFORMATION
  Report Type: Spontaneous
  Country: US (occurrence: None)
  Receive Date: 20130226
  Receipt Date: 20130226
  Transmission Date: 20140127
  Serious: Yes (Life-Threatening, Disabling, Other)
  Sender: FDA-Public Use
  Company Number: None

PATIENT
  Age: 41 Year
  Sex: Female
  Weight: 68.04 kg

DRUGS (1)
  1. BOTOX [Suspect]
     Indication: MIGRAINE
     Dosage: 165 UNITS ONE TIME SQ
     Route: 058
     Dates: start: 20130109, end: 20130109

REACTIONS (17)
  - Vertigo [None]
  - Tinnitus [None]
  - Eyelid ptosis [None]
  - Confusional state [None]
  - Amnesia [None]
  - Disturbance in attention [None]
  - Vision blurred [None]
  - Dyspnoea [None]
  - Dysphagia [None]
  - Fatigue [None]
  - Muscular weakness [None]
  - Hypoaesthesia [None]
  - Paraesthesia [None]
  - Convulsion [None]
  - Syncope [None]
  - Headache [None]
  - Muscle twitching [None]
